FAERS Safety Report 10905743 (Version 2)
Quarter: 2015Q1

REPORT INFORMATION
  Report Type: Spontaneous
  Country: JP (occurrence: JP)
  Receive Date: 20150311
  Receipt Date: 20150331
  Transmission Date: 20150721
  Serious: Yes (Hospitalization, Other)
  Sender: FDA-Public Use
  Company Number: JP-GILEAD-2015-0140607

PATIENT
  Age: 60 Year
  Sex: Male

DRUGS (12)
  1. HEPSERA [Suspect]
     Active Substance: ADEFOVIR DIPIVOXIL
     Dosage: 10 MG, QD
     Route: 048
     Dates: end: 201411
  2. MELOXICAM. [Concomitant]
     Active Substance: MELOXICAM
  3. NEUER [Concomitant]
     Active Substance: CETRAXATE HYDROCHLORIDE
  4. LICKLE [Concomitant]
     Active Substance: ISOLEUCINE\LEUCINE\VALINE
  5. ALFACALCIDOL [Concomitant]
     Active Substance: ALFACALCIDOL
  6. BROTIZOLAM [Concomitant]
     Active Substance: BROTIZOLAM
  7. BLOPRESS [Concomitant]
     Active Substance: CANDESARTAN CILEXETIL
  8. VOLTAREN [Concomitant]
     Active Substance: DICLOFENAC SODIUM
  9. LANSOPRAZOLE. [Concomitant]
     Active Substance: LANSOPRAZOLE
     Dosage: UNK
  10. ZOLPIDEM TARTRATE. [Concomitant]
     Active Substance: ZOLPIDEM TARTRATE
  11. HEPSERA [Suspect]
     Active Substance: ADEFOVIR DIPIVOXIL
     Indication: CHRONIC HEPATITIS B
     Dosage: 10 MG, QOD
     Route: 048
     Dates: start: 201411, end: 20150227
  12. BARACLUDE [Concomitant]
     Active Substance: ENTECAVIR
     Indication: CHRONIC HEPATITIS B
     Dosage: UNK

REACTIONS (11)
  - Thoracic vertebral fracture [Unknown]
  - Hypophosphataemia [Recovering/Resolving]
  - Blood alkaline phosphatase increased [Unknown]
  - Fracture [Not Recovered/Not Resolved]
  - Femoral neck fracture [Unknown]
  - Renal impairment [Not Recovered/Not Resolved]
  - Fanconi syndrome acquired [Unknown]
  - Rib fracture [Unknown]
  - Lumbar vertebral fracture [Unknown]
  - Intervertebral disc disorder [Unknown]
  - Osteomalacia [Recovering/Resolving]

NARRATIVE: CASE EVENT DATE: 201105
